FAERS Safety Report 9173736 (Version 1)
Quarter: 2013Q1

REPORT INFORMATION
  Report Type: Spontaneous
  Country: JP (occurrence: JP)
  Receive Date: 20130320
  Receipt Date: 20130320
  Transmission Date: 20140127
  Serious: Yes (Hospitalization, Other)
  Sender: FDA-Public Use
  Company Number: JP-ASTELLAS-2013JP003975

PATIENT
  Age: 76 Year
  Sex: Female

DRUGS (56)
  1. PROGRAF [Suspect]
     Indication: RHEUMATOID ARTHRITIS
     Dosage: 1 MG, UID/QD
     Route: 048
     Dates: start: 2009, end: 20090929
  2. PROGRAF [Suspect]
     Dosage: 2 MG, UID/QD
     Route: 048
     Dates: start: 2009
  3. ACTEMRA [Suspect]
     Indication: RHEUMATOID ARTHRITIS
     Dosage: UNK
     Route: 041
     Dates: start: 20090608, end: 20090929
  4. ACTEMRA [Suspect]
     Dosage: UNK
     Route: 041
     Dates: start: 20091027, end: 20100511
  5. ACTEMRA [Suspect]
     Dosage: 400 MG, UID/QD
     Route: 041
     Dates: start: 20100608, end: 20100706
  6. ACTEMRA [Suspect]
     Route: 041
  7. METHOTREXATE [Suspect]
     Indication: RHEUMATOID ARTHRITIS
     Dosage: UNK
     Route: 048
     Dates: start: 200907, end: 200907
  8. METHOTREXATE [Suspect]
     Dosage: 10 MG, WEEKLY
     Route: 048
     Dates: start: 200907, end: 20090803
  9. METHOTREXATE [Suspect]
     Dosage: 7.5 MG, WEEKLY
     Route: 048
     Dates: start: 20090804, end: 20090929
  10. METHOTREXATE [Suspect]
     Dosage: UNK
     Route: 048
     Dates: start: 20091007, end: 20091007
  11. METHOTREXATE [Suspect]
     Dosage: UNK
     Route: 048
     Dates: start: 20091010, end: 20100608
  12. METHOTREXATE [Suspect]
     Dosage: UNK
     Route: 048
     Dates: start: 20100609, end: 2010
  13. METHOTREXATE [Suspect]
     Dosage: 2.5 MG, WEEKLY
     Route: 048
     Dates: start: 2010, end: 20100830
  14. PREDNISOLONE [Suspect]
     Indication: RHEUMATOID ARTHRITIS
     Dosage: 1 MG, UID/QD
     Route: 048
     Dates: end: 20090611
  15. PREDNISOLONE [Suspect]
     Dosage: 5 MG, UID/QD
     Route: 048
     Dates: start: 20090612, end: 20090614
  16. PREDNISOLONE [Suspect]
     Dosage: 3 MG, UID/QD
     Route: 048
     Dates: start: 20090615, end: 20090617
  17. PREDNISOLONE [Suspect]
     Dosage: 1 MG, UID/QD
     Route: 048
     Dates: start: 20090618, end: 20090629
  18. PREDNISOLONE [Suspect]
     Dosage: 3 MG, UID/QD
     Route: 048
     Dates: start: 20090630, end: 20090706
  19. PREDNISOLONE [Suspect]
     Dosage: 2 MG, UID/QD
     Route: 048
     Dates: start: 20090930, end: 20090930
  20. PREDNISOLONE [Suspect]
     Dosage: 5 MG, UID/QD
     Route: 048
     Dates: start: 20091001, end: 20091004
  21. PREDNISOLONE [Suspect]
     Dosage: 7 MG, UID/QD
     Route: 048
     Dates: start: 20091005, end: 20091009
  22. PREDNISOLONE [Suspect]
     Dosage: 5 MG, UID/QD
     Route: 048
     Dates: start: 20091010, end: 20091027
  23. PREDNISOLONE [Suspect]
     Dosage: 4 MG, UID/QD
     Route: 048
     Dates: start: 20091028, end: 20100111
  24. PREDNISOLONE [Suspect]
     Dosage: 2 MG, UID/QD
     Route: 048
     Dates: start: 2010
  25. PREDNISOLONE [Suspect]
     Dosage: 30 MG, UID/QD
     Route: 048
     Dates: start: 20101003
  26. ISCOTIN                            /00030201/ [Concomitant]
     Dosage: 200 MG, UID/QD
     Route: 048
  27. ROCALTROL [Concomitant]
     Dosage: 0.5 UG, UID/QD
     Route: 048
  28. METHYCOBAL [Concomitant]
     Dosage: 1000 UG, UID/QD
     Route: 048
     Dates: start: 20091208, end: 20100215
  29. SULFAMETHOXAZOLE W/TRIMETHOPRIM [Concomitant]
     Dosage: 4 DF, UID/QD
     Route: 048
  30. SIMVASTATIN [Concomitant]
     Dosage: 10 MG, UID/QD
     Route: 048
  31. MAGMITT [Concomitant]
     Dosage: 500 MG, UID/QD
     Route: 048
  32. PARIET [Concomitant]
     Dosage: 10 MG, UID/QD
     Route: 048
  33. BONALON [Concomitant]
     Dosage: 35 MG, WEEKLY
     Route: 048
  34. SALAZOSULFAPYRIDINE [Concomitant]
     Dosage: 1 G, UID/QD
     Route: 048
     Dates: end: 20090608
  35. SALAZOSULFAPYRIDINE [Concomitant]
     Dosage: 500 MG, UNKNOWN/D
     Route: 048
     Dates: start: 20090609, end: 20090609
  36. FOLIN                              /00098801/ [Concomitant]
     Dosage: 5 MG, WEEKLY
     Route: 048
  37. MICARDIS [Concomitant]
     Dosage: 20 MG, UID/QD
     Route: 048
     Dates: start: 20100302, end: 20100316
  38. MICARDIS [Concomitant]
     Dosage: 40 MG, UID/QD
     Route: 048
     Dates: start: 20100317
  39. MEDROL                             /00049601/ [Concomitant]
     Dosage: 4 MG, UID/QD
     Route: 048
     Dates: start: 20100119
  40. BREDININ [Concomitant]
     Dosage: 2 MG, UID/QD
     Route: 048
  41. ALFAROL [Concomitant]
     Route: 048
  42. LIPOVAS                            /00848101/ [Concomitant]
     Route: 048
  43. OMEPRAL /00661201/ [Concomitant]
     Route: 048
  44. URALYT                             /06402701/ [Concomitant]
     Route: 048
  45. ALLEGRA [Concomitant]
     Route: 048
  46. MOHRUS [Concomitant]
     Route: 061
  47. FIRSTCIN [Concomitant]
     Dosage: 1 G, UNKNOWN/D
     Route: 041
     Dates: start: 20090721, end: 20090721
  48. FIRSTCIN [Concomitant]
     Dosage: 1 G, UNKNOWN/D
     Route: 041
     Dates: start: 20090728, end: 20090728
  49. SWORD [Concomitant]
     Dosage: 400 MG, UNKNOWN/D
     Route: 048
     Dates: start: 20090721
  50. SWORD [Concomitant]
     Dosage: 400 MG, UNKNOWN/D
     Route: 048
     Dates: start: 20100607, end: 20100611
  51. MEROPEN                            /01250502/ [Concomitant]
     Dosage: 0.5 G, UNKNOWN/D
     Route: 065
     Dates: start: 20100525, end: 20100526
  52. MEROPEN                            /01250502/ [Concomitant]
     Dosage: 1 G, UNKNOWN/D
     Route: 065
     Dates: start: 20100527, end: 20100531
  53. CRAVIT [Concomitant]
     Dosage: 500 MG, UNKNOWN/D
     Route: 065
     Dates: start: 20100601, end: 20100606
  54. ALDACTONE A [Concomitant]
     Route: 048
  55. LASIX                              /00032601/ [Concomitant]
     Route: 065
  56. ENBREL [Concomitant]
     Route: 065

REACTIONS (12)
  - Pneumonia [Recovering/Resolving]
  - Pancytopenia [Recovered/Resolved]
  - Cardiac failure [Recovered/Resolved]
  - Diabetes mellitus [Recovering/Resolving]
  - Subdural haematoma [Unknown]
  - Bone marrow failure [Recovered/Resolved]
  - White blood cell count decreased [Recovered/Resolved]
  - Fall [Unknown]
  - Contusion [Unknown]
  - Pneumonia [Recovered/Resolved]
  - Blood pressure increased [Recovered/Resolved]
  - Renal impairment [Recovered/Resolved]
